FAERS Safety Report 10273125 (Version 1)
Quarter: 2014Q1

REPORT INFORMATION
  Report Type: Spontaneous
  Country: US (occurrence: None)
  Receive Date: 20140306
  Receipt Date: 20140306
  Transmission Date: 20141002
  Serious: Yes (Other)
  Sender: FDA-Public Use
  Company Number: 163-21880-13083486

PATIENT
  Age: 61 Year
  Sex: Female
  Weight: 83.92 kg

DRUGS (1)
  1. REVLIMID [Suspect]
     Indication: LYMPHOMA
     Dosage: 10 MG, 1 IN 1 D, PO  07/ 2013 - 08/2013 THERAPY DATES
     Route: 048
     Dates: start: 201307, end: 201308

REACTIONS (2)
  - Lymphoma [None]
  - Disease progression [None]
